FAERS Safety Report 13383587 (Version 1)
Quarter: 2017Q1

REPORT INFORMATION
  Report Type: Spontaneous
  Country: US (occurrence: US)
  Receive Date: 20170329
  Receipt Date: 20170329
  Transmission Date: 20170429
  Serious: Yes (Other)
  Sender: FDA-Public Use
  Company Number: US-JNJFOC-20170322803

PATIENT
  Age: 41 Year
  Sex: Female

DRUGS (4)
  1. REXULTI [Suspect]
     Active Substance: BREXPIPRAZOLE
     Indication: SCHIZOPHRENIA
     Route: 048
  2. HALDOL [Suspect]
     Active Substance: HALOPERIDOL
     Indication: PRODUCT USED FOR UNKNOWN INDICATION
     Route: 065
  3. LITHIUM. [Concomitant]
     Active Substance: LITHIUM
     Route: 065
  4. REXULTI [Suspect]
     Active Substance: BREXPIPRAZOLE
     Indication: SCHIZOPHRENIA
     Route: 048
     Dates: start: 201701

REACTIONS (12)
  - Intentional self-injury [Not Recovered/Not Resolved]
  - Speech disorder [Not Recovered/Not Resolved]
  - Screaming [Not Recovered/Not Resolved]
  - White blood cell count abnormal [Not Recovered/Not Resolved]
  - Agitation [Not Recovered/Not Resolved]
  - Loss of consciousness [Recovered/Resolved]
  - Feeling abnormal [Not Recovered/Not Resolved]
  - Akathisia [Not Recovered/Not Resolved]
  - Aphasia [Recovered/Resolved]
  - Suicidal ideation [Recovered/Resolved]
  - Abnormal behaviour [Not Recovered/Not Resolved]
  - Insomnia [Not Recovered/Not Resolved]

NARRATIVE: CASE EVENT DATE: 2017
